FAERS Safety Report 7241419-3 (Version None)
Quarter: 2011Q1

REPORT INFORMATION
  Report Type: 
  Country: None (occurrence: None)
  Receive Date: 20110124
  Receipt Date: 20101213
  Transmission Date: 20110831
  Serious: Yes (Hospitalization)
  Sender: FDA-Public Use
  Company Number: AU-ROCHE-754338

PATIENT
  Age: 44 Year
  Sex: Female

DRUGS (3)
  1. DIAZEPAM [Suspect]
     Route: 065
  2. OXAZEPAM [Suspect]
     Route: 065
  3. ATRIPLA [Suspect]
     Dosage: DOSE: 1 DOSE UNSPECIFIED, FREQUENCY: DAILY
     Route: 065
     Dates: start: 20101020, end: 20101103

REACTIONS (5)
  - HALLUCINATION, VISUAL [None]
  - ABNORMAL DREAMS [None]
  - TEARFULNESS [None]
  - SUICIDAL IDEATION [None]
  - INSOMNIA [None]
